FAERS Safety Report 5588117-X (Version None)
Quarter: 2008Q1

REPORT INFORMATION
  Report Type: 
  Country: None (occurrence: None)
  Receive Date: 20080108
  Receipt Date: 20071224
  Transmission Date: 20080703
  Serious: Yes (Disabling)
  Sender: FDA-Public Use
  Company Number: ADE2007-0090

PATIENT
  Age: 35 Year
  Sex: Male

DRUGS (1)
  1. CITALOPRAM HYDROBROMIDE [Suspect]
     Dosage: 20MG UNK PO
     Route: 048
     Dates: start: 20060427, end: 20060804

REACTIONS (5)
  - HYPOAESTHESIA [None]
  - PURPURA [None]
  - RASH PAPULAR [None]
  - SCAR [None]
  - VASCULITIS [None]
